FAERS Safety Report 16936788 (Version 1)
Quarter: 2019Q4

REPORT INFORMATION
  Report Type: Report from Study
  Country: MX (occurrence: MX)
  Receive Date: 20191018
  Receipt Date: 20191018
  Transmission Date: 20200122
  Serious: Yes (Hospitalization)
  Sender: FDA-Public Use
  Company Number: MX-BAYER-2019-170563

PATIENT
  Age: 30 Year
  Sex: Female

DRUGS (2)
  1. ADEMPAS [Suspect]
     Active Substance: RIOCIGUAT
     Dosage: 2.5 MG, Q8HR
     Dates: start: 20181024
  2. ADEMPAS [Suspect]
     Active Substance: RIOCIGUAT
     Dosage: 2.5 MG, Q8HR
     Dates: start: 20191008

REACTIONS (4)
  - Migraine [Not Recovered/Not Resolved]
  - Drug dose titration not performed [None]
  - Product supply issue [None]
  - Hospitalisation [None]

NARRATIVE: CASE EVENT DATE: 2019
